APPROVED DRUG PRODUCT: DRAXIMAGE MDP-25
Active Ingredient: TECHNETIUM TC-99M MEDRONATE
Strength: N/A
Dosage Form/Route: INJECTABLE;INJECTION
Application: N018035 | Product #002
Applicant: JUBILANT DRAXIMAGE INC DBA JUBILANT RADIOPHARMA
Approved: Feb 27, 2004 | RLD: Yes | RS: Yes | Type: RX